FAERS Safety Report 9514262 (Version 1)
Quarter: 2013Q3

REPORT INFORMATION
  Report Type: Spontaneous
  Country: TR (occurrence: TR)
  Receive Date: 20130910
  Receipt Date: 20130910
  Transmission Date: 20140515
  Serious: Yes (Other)
  Sender: FDA-Public Use
  Company Number: TR-TAKEDA-2013TJP000012

PATIENT
  Age: 41 Year
  Sex: Female

DRUGS (1)
  1. LANSOPRAZOLE [Suspect]

REACTIONS (4)
  - Angioedema [Unknown]
  - Diarrhoea [Unknown]
  - Urticaria [Unknown]
  - Vomiting [Unknown]
